FAERS Safety Report 4545553-8 (Version None)
Quarter: 2005Q1

REPORT INFORMATION
  Report Type: 
  Country: None (occurrence: None)
  Receive Date: 20050105
  Receipt Date: 20050103
  Transmission Date: 20050727
  Serious: Yes (Hospitalization)
  Sender: FDA-Public Use
  Company Number: FR-MERCK-0501FRA00004

PATIENT
  Age: 83 Year
  Sex: Female

DRUGS (7)
  1. HYZAAR [Suspect]
     Indication: HYPERTENSION
     Route: 048
     Dates: start: 20041110, end: 20041201
  2. FLUOXETINE HYDROCHLORIDE [Suspect]
     Indication: DEPRESSION
     Route: 048
     Dates: start: 20041122, end: 20041201
  3. ATORVASTATIN CALCIUM [Concomitant]
     Route: 048
  4. NICARDIPINE HYDROCHLORIDE [Concomitant]
     Route: 048
  5. BETAXOLOL HYDROCHLORIDE [Concomitant]
     Route: 048
  6. COZAAR [Concomitant]
     Route: 048
     Dates: end: 20041101
  7. COZAAR [Concomitant]
     Route: 048
     Dates: start: 20041201

REACTIONS (5)
  - CONFUSIONAL STATE [None]
  - HALLUCINATION, VISUAL [None]
  - HYPONATRAEMIA [None]
  - URINE POTASSIUM DECREASED [None]
  - URINE SODIUM DECREASED [None]
